FAERS Safety Report 13143031 (Version 1)
Quarter: 2017Q1

REPORT INFORMATION
  Report Type: Spontaneous
  Country: US (occurrence: US)
  Receive Date: 20170124
  Receipt Date: 20170124
  Transmission Date: 20170428
  Serious: No
  Sender: FDA-Public Use
  Company Number: US-PFIZER INC-2017029662

PATIENT
  Age: 83 Year
  Sex: Female

DRUGS (5)
  1. ASPIRIN. [Suspect]
     Active Substance: ASPIRIN
     Dosage: UNK
  2. NORFLEX [Suspect]
     Active Substance: ORPHENADRINE CITRATE
     Dosage: UNK
  3. SODIUM METABISULFITE [Suspect]
     Active Substance: SODIUM METABISULFITE
     Dosage: UNK
  4. IBUPROFEN. [Suspect]
     Active Substance: IBUPROFEN
     Dosage: UNK
  5. ORPHENADRINE [Suspect]
     Active Substance: ORPHENADRINE
     Dosage: UNK

REACTIONS (1)
  - Drug hypersensitivity [Unknown]
